APPROVED DRUG PRODUCT: LEVONORGESTREL
Active Ingredient: LEVONORGESTREL
Strength: 1.5MG
Dosage Form/Route: TABLET;ORAL
Application: A202508 | Product #001
Applicant: NOVEL LABORATORIES INC
Approved: Feb 22, 2013 | RLD: No | RS: No | Type: OTC